FAERS Safety Report 10540485 (Version 2)
Quarter: 2016Q4

REPORT INFORMATION
  Report Type: Report from Study
  Country: US (occurrence: US)
  Receive Date: 20141024
  Receipt Date: 20161117
  Transmission Date: 20170206
  Serious: Yes (Hospitalization)
  Sender: FDA-Public Use
  Company Number: US-SA-2014SA144304

PATIENT
  Age: 59 Year
  Sex: Male

DRUGS (3)
  1. FABRAZYME [Suspect]
     Active Substance: AGALSIDASE BETA
     Indication: FABRY^S DISEASE
     Dosage: FREQUENCY: Q2
     Route: 042
     Dates: start: 200512
  2. FABRAZYME [Suspect]
     Active Substance: AGALSIDASE BETA
     Indication: FABRY^S DISEASE
     Dosage: FREQUENCY: Q2
     Route: 042
     Dates: start: 201205
  3. FABRAZYME [Suspect]
     Active Substance: AGALSIDASE BETA
     Indication: FABRY^S DISEASE
     Dosage: FREQUENCY: Q2
     Route: 042
     Dates: start: 20030701

REACTIONS (1)
  - Cardiac arrest [Unknown]
